FAERS Safety Report 5035252-0 (Version None)
Quarter: 2006Q2

REPORT INFORMATION
  Report Type: 
  Country: None (occurrence: None)
  Receive Date: 20060622
  Receipt Date: 20060622
  Transmission Date: 20061013
  Serious: Yes (Other)
  Sender: FDA-Public Use
  Company Number: None

PATIENT
  Sex: Female
  Weight: 64.4108 kg

DRUGS (1)
  1. ZOMETA [Suspect]
     Indication: BREAST CANCER

REACTIONS (10)
  - ANAESTHESIA [None]
  - BONE DISORDER [None]
  - HYPOAESTHESIA ORAL [None]
  - JAW DISORDER [None]
  - LOOSE TOOTH [None]
  - METASTASES TO BONE [None]
  - PAIN IN JAW [None]
  - PARAESTHESIA [None]
  - TOOTH LOSS [None]
  - WOUND [None]
